FAERS Safety Report 10437432 (Version 1)
Quarter: 2014Q3

REPORT INFORMATION
  Report Type: Spontaneous
  Country: US (occurrence: US)
  Receive Date: 20140908
  Receipt Date: 20140908
  Transmission Date: 20150326
  Serious: No
  Sender: FDA-Public Use
  Company Number: US-BRISTOL-MYERS SQUIBB COMPANY-20957098

PATIENT
  Age: 39 Year
  Sex: Male

DRUGS (3)
  1. ABILIFY [Suspect]
     Active Substance: ARIPIPRAZOLE
     Indication: AGORAPHOBIA
     Route: 048
     Dates: start: 20140527, end: 20140530
  2. ABILIFY [Suspect]
     Active Substance: ARIPIPRAZOLE
     Indication: PANIC ATTACK
     Route: 048
     Dates: start: 20140527, end: 20140530
  3. METOPROLOL [Concomitant]
     Active Substance: METOPROLOL
     Indication: MIGRAINE

REACTIONS (4)
  - Insomnia [Recovering/Resolving]
  - Dyspepsia [Recovered/Resolved]
  - Off label use [Unknown]
  - Panic reaction [Recovered/Resolved]

NARRATIVE: CASE EVENT DATE: 201405
